FAERS Safety Report 5409292-3 (Version None)
Quarter: 2007Q3

REPORT INFORMATION
  Report Type: 
  Country: None (occurrence: None)
  Receive Date: 20070809
  Receipt Date: 20070803
  Transmission Date: 20080115
  Serious: Yes (Death)
  Sender: FDA-Public Use
  Company Number: HQWYE973909JUL07

PATIENT
  Sex: Male
  Weight: 68 kg

DRUGS (10)
  1. GEMTUZUMAB OZOGAMICIN [Suspect]
     Indication: ACUTE MYELOID LEUKAEMIA
     Dosage: ACTUAL DOSE GIVEN 10 MG; CUMULATIVE DOSE GIVEN 20 MG
     Dates: start: 20070522, end: 20070608
  2. ETOPOSIDE [Suspect]
     Indication: ACUTE MYELOID LEUKAEMIA
     Dosage: TOAL CUMULATIVE DOSE THIS CYCLE, 540 MG
     Dates: start: 20070614, end: 20070616
  3. CYTARABINE [Suspect]
     Indication: ACUTE MYELOID LEUKAEMIA
     Dosage: TOTAL CUMULATIVE DOSE THIS CYCLE, 1260 MG
     Dates: start: 20070614, end: 20070620
  4. CANCIDAS [Concomitant]
     Indication: INFECTION
     Dosage: ^50 MG/ DIE EU^
     Dates: start: 20070614, end: 20070701
  5. TAZOCIN [Concomitant]
     Indication: INFECTION
     Dosage: ^4 G PER 3/ DIE EU^
     Dates: start: 20070531, end: 20070701
  6. ZYVOX [Concomitant]
     Indication: INFECTION
     Dosage: ^600 MG X 2/ DIE PER OS^
     Dates: start: 20070624, end: 20070701
  7. LEVOFLOXACIN [Concomitant]
     Indication: INFECTION
     Dosage: ^500 MG/ DIE EU^
     Dates: start: 20070621, end: 20070701
  8. AMBISOME [Concomitant]
     Indication: INFECTION
     Dosage: ^200 MG/ DIE EU^
     Dates: start: 20070623, end: 20070701
  9. MITOXANTRONE [Suspect]
     Indication: ACUTE MYELOID LEUKAEMIA
     Dosage: TOTAL CUMULATIVE DOSE THIS CYCLE, 36 MG
     Dates: start: 20070614, end: 20070618
  10. MORPHINE [Concomitant]
     Dosage: DOSE AND FREQUENCY NOT REPORTED
     Dates: start: 20070630, end: 20070701

REACTIONS (1)
  - SEPTIC SHOCK [None]
